FAERS Safety Report 25378611 (Version 2)
Quarter: 2025Q3

REPORT INFORMATION
  Report Type: Spontaneous
  Country: JP (occurrence: JP)
  Receive Date: 20250530
  Receipt Date: 20250711
  Transmission Date: 20251020
  Serious: Yes (Other)
  Sender: TAKEDA
  Company Number: JP-TAKEDA-2025TJP005097

PATIENT

DRUGS (1)
  1. KENKETU GLOVENIN-I [Suspect]
     Active Substance: HUMAN IMMUNOGLOBULIN G
     Indication: Kawasaki^s disease

REACTIONS (2)
  - Skin necrosis [Recovered/Resolved]
  - Infusion site extravasation [Unknown]
